FAERS Safety Report 9998662 (Version 1)
Quarter: 2014Q1

REPORT INFORMATION
  Report Type: Spontaneous
  Country: US (occurrence: US)
  Receive Date: 20140312
  Receipt Date: 20140312
  Transmission Date: 20141002
  Serious: No
  Sender: FDA-Public Use
  Company Number: US-BIOGENIDEC-2014BI019198

PATIENT
  Age: 62 Year
  Sex: Female

DRUGS (1)
  1. TECFIDERA [Suspect]
     Indication: MULTIPLE SCLEROSIS
     Route: 048
     Dates: start: 201310

REACTIONS (6)
  - Scar [Recovered/Resolved]
  - Viral infection [Recovered/Resolved]
  - Pruritus [Unknown]
  - Rash papular [Unknown]
  - Nausea [Recovered/Resolved]
  - Burning sensation [Recovered/Resolved]
